FAERS Safety Report 9361788 (Version 2)
Quarter: 2013Q3

REPORT INFORMATION
  Report Type: Report from Study
  Country: NL (occurrence: NL)
  Receive Date: 20130621
  Receipt Date: 20130827
  Transmission Date: 20140515
  Serious: Yes (Hospitalization)
  Sender: FDA-Public Use
  Company Number: NL-ABBOTT-13P-114-1104486-00

PATIENT
  Age: 80 Year
  Sex: Male
  Weight: 64 kg

DRUGS (5)
  1. LEUPRORELINE (LUCRIN) [Suspect]
     Indication: PROSTATE CANCER
     Route: 058
     Dates: start: 20060120
  2. SPIRIVA [Concomitant]
     Indication: CHRONIC OBSTRUCTIVE PULMONARY DISEASE
     Route: 055
     Dates: start: 20060407
  3. AVODART [Concomitant]
     Indication: PROSTATE CANCER
     Route: 048
     Dates: start: 20130404
  4. SERETIDE [Concomitant]
     Indication: CHRONIC OBSTRUCTIVE PULMONARY DISEASE
     Dosage: FORM STRENGTH: 25/250MCG  (100/1000 MCG DAILY)
     Route: 055
     Dates: start: 20130507, end: 20130528
  5. BICALUTAMIDE [Concomitant]
     Indication: PROSTATE CANCER
     Route: 048
     Dates: start: 20130507

REACTIONS (5)
  - Cystitis noninfective [Not Recovered/Not Resolved]
  - Weight decreased [Recovered/Resolved]
  - Pulmonary embolism [Recovered/Resolved]
  - Respiratory tract congestion [Recovered/Resolved]
  - Cystitis [Unknown]
